FAERS Safety Report 7452225-9 (Version None)
Quarter: 2011Q2

REPORT INFORMATION
  Report Type: 
  Country: None (occurrence: None)
  Receive Date: 20110425
  Receipt Date: 20110420
  Transmission Date: 20111010
  Serious: Yes (Life-Threatening, Hospitalization)
  Sender: FDA-Public Use
  Company Number: 2011SP015398

PATIENT
  Age: 20 Year
  Sex: Female
  Weight: 54.8852 kg

DRUGS (4)
  1. ANTIBIOTICS [Suspect]
     Indication: DRUG INTERACTION
     Dosage: ;IV
     Route: 042
     Dates: start: 20100801
  2. ALBUTEROL [Concomitant]
  3. IMPLANON [Suspect]
     Indication: CONTRACEPTION
     Dosage: 1 DF; ;SBDE
     Route: 059
     Dates: start: 20110418
  4. IMPLANON [Suspect]
     Indication: CONTRACEPTION
     Dosage: 1 DF; ;SBDE
     Route: 059
     Dates: start: 20090129, end: 20110418

REACTIONS (4)
  - PYELONEPHRITIS [None]
  - METRORRHAGIA [None]
  - COITAL BLEEDING [None]
  - SEPSIS [None]
